FAERS Safety Report 8268579-X (Version None)
Quarter: 2012Q1

REPORT INFORMATION
  Report Type: 
  Country: None (occurrence: None)
  Receive Date: 20120327
  Receipt Date: 20090629
  Transmission Date: 20120608
  Serious: Yes (Other)
  Sender: FDA-Public Use
  Company Number: PHEH2009US06902

PATIENT
  Age: 43 Year
  Sex: Female

DRUGS (2)
  1. GLEEVEC [Suspect]
     Indication: CHRONIC MYELOID LEUKAEMIA
     Dosage: 600 MG/DAY, ORAL  : 400 MG, QD, ORAL
     Route: 048
     Dates: start: 20090313, end: 20090326
  2. HYDREA [Concomitant]

REACTIONS (1)
  - BONE MARROW FAILURE [None]
